FAERS Safety Report 9068747 (Version 1)
Quarter: 2013Q1

REPORT INFORMATION
  Report Type: Spontaneous
  Country: US (occurrence: None)
  Receive Date: 20130212
  Receipt Date: 20130212
  Transmission Date: 20140127
  Serious: Yes (Life-Threatening, Hospitalization)
  Sender: FDA-Public Use
  Company Number: None

PATIENT
  Age: 39 Year
  Sex: Female
  Weight: 97.6 kg

DRUGS (2)
  1. LAMOTRIGINE [Suspect]
     Indication: AFFECTIVE DISORDER
     Dosage: 100 MG BID PO
     Route: 048
     Dates: start: 201109
  2. LAMOTRIGINE [Suspect]
     Indication: AFFECTIVE DISORDER
     Dosage: 100 MG BID PO
     Route: 048
     Dates: start: 201109

REACTIONS (6)
  - Abdominal pain upper [None]
  - Pain [None]
  - Nausea [None]
  - Aspartate aminotransferase increased [None]
  - Alanine aminotransferase increased [None]
  - Blood bilirubin increased [None]
